FAERS Safety Report 11793413 (Version 1)
Quarter: 2015Q4

REPORT INFORMATION
  Report Type: Spontaneous
  Country: BR (occurrence: BR)
  Receive Date: 20151202
  Receipt Date: 20151202
  Transmission Date: 20160305
  Serious: Yes (Hospitalization, Other)
  Sender: FDA-Public Use
  Company Number: PHHY2015BR156635

PATIENT
  Age: 54 Year

DRUGS (3)
  1. PANTOPRAZOLE [Concomitant]
     Active Substance: PANTOPRAZOLE SODIUM
     Indication: PRODUCT USED FOR UNKNOWN INDICATION
     Dosage: 20 MG, QD
     Route: 047
  2. VOTRIENT [Suspect]
     Active Substance: PAZOPANIB HYDROCHLORIDE
     Dosage: 400 MG, UNK
     Route: 048
     Dates: start: 20151104
  3. VOTRIENT [Suspect]
     Active Substance: PAZOPANIB HYDROCHLORIDE
     Indication: PRODUCT USED FOR UNKNOWN INDICATION
     Dosage: 800 MG, UNK
     Route: 048
     Dates: start: 20150922

REACTIONS (15)
  - Stomatitis [Recovered/Resolved]
  - Diarrhoea [Recovered/Resolved]
  - Hypertension [Recovered/Resolved]
  - Hyperglycaemia [Recovered/Resolved]
  - Dysgeusia [Unknown]
  - Muscle disorder [Unknown]
  - Miliaria [Recovered/Resolved]
  - Epistaxis [Recovered/Resolved]
  - Cystitis [Unknown]
  - Anal fissure [Recovered/Resolved]
  - Lung infection [Unknown]
  - Aphthous ulcer [Recovered/Resolved]
  - Skin discolouration [Recovered/Resolved]
  - Decreased appetite [Recovered/Resolved]
  - Weight decreased [Recovered/Resolved]

NARRATIVE: CASE EVENT DATE: 20150922
